FAERS Safety Report 23094038 (Version 1)
Quarter: 2023Q4

REPORT INFORMATION
  Report Type: Other
  Country: DE (occurrence: DE)
  Receive Date: 20231023
  Receipt Date: 20231023
  Transmission Date: 20240109
  Serious: Yes (Hospitalization, Other)
  Sender: FDA-Public Use
  Company Number: DE-MYLANLABS-2022M1087301

PATIENT
  Sex: Female

DRUGS (5)
  1. METHOTREXATE [Suspect]
     Active Substance: METHOTREXATE
     Indication: Rheumatoid arthritis
     Route: 065
     Dates: start: 20190326
  2. METHOTREXATE [Suspect]
     Active Substance: METHOTREXATE
     Route: 065
     Dates: start: 20180801
  3. METHOTREXATE [Suspect]
     Active Substance: METHOTREXATE
     Route: 065
     Dates: start: 20190930
  4. RITUXIMAB [Suspect]
     Active Substance: RITUXIMAB
     Indication: Rheumatoid arthritis
     Dosage: TRUXIMA
     Route: 042
     Dates: start: 201709
  5. RITUXIMAB [Suspect]
     Active Substance: RITUXIMAB
     Indication: Rheumatoid arthritis
     Route: 065
     Dates: start: 201702

REACTIONS (12)
  - Anaemia [Not Recovered/Not Resolved]
  - Chondrocalcinosis [Unknown]
  - Alopecia [Not Recovered/Not Resolved]
  - Gardnerella test positive [Unknown]
  - Stress fracture [Unknown]
  - Femur fracture [Not Recovered/Not Resolved]
  - Cardiac failure [Recovered/Resolved]
  - Escherichia urinary tract infection [Unknown]
  - Rib fracture [Unknown]
  - Pain [Recovered/Resolved]
  - COVID-19 [Unknown]
  - Synovitis [Recovered/Resolved]

NARRATIVE: CASE EVENT DATE: 20180901
